FAERS Safety Report 6270123-3 (Version None)
Quarter: 2009Q3

REPORT INFORMATION
  Report Type: 
  Country: None (occurrence: None)
  Receive Date: 20090716
  Receipt Date: 20090413
  Transmission Date: 20100115
  Serious: No
  Sender: FDA-Public Use
  Company Number: US-BAYER-200918134NA

PATIENT
  Age: 45 Year
  Sex: Female

DRUGS (6)
  1. YAZ [Suspect]
     Indication: CONTRACEPTION
     Route: 048
     Dates: start: 20090403
  2. CYMBALTA [Concomitant]
  3. QUETIAPINE FUMARATE [Concomitant]
  4. IRON SUPPLEMENT [Concomitant]
  5. VITAMIN B COMPLEX CAP [Concomitant]
  6. LIBRIUM [Concomitant]

REACTIONS (1)
  - METRORRHAGIA [None]
